FAERS Safety Report 16378821 (Version 1)
Quarter: 2019Q2

REPORT INFORMATION
  Report Type: Spontaneous
  Country: US (occurrence: US)
  Receive Date: 20190417
  Receipt Date: 20190417
  Transmission Date: 20190711
  Serious: Yes (Life-Threatening)
  Sender: FDA-Public Use
  Company Number: None

PATIENT
  Age: 65 Year
  Sex: Male
  Weight: 86.94 kg

DRUGS (22)
  1. AZITHROMYCIN ANHYDROUS. [Concomitant]
     Active Substance: AZITHROMYCIN ANHYDROUS
  2. CYCLOPHOSAMIDE [Concomitant]
     Active Substance: CYCLOPHOSPHAMIDE
  3. ACYCLOVIR. [Concomitant]
     Active Substance: ACYCLOVIR
  4. BACTRIM DS [Concomitant]
     Active Substance: SULFAMETHOXAZOLE\TRIMETHOPRIM
  5. GABAPENTIN. [Concomitant]
     Active Substance: GABAPENTIN
  6. HEPARIN LOCK FLUSH [Concomitant]
     Active Substance: HEPARIN SODIUM
  7. CALCIUM + D [Concomitant]
     Active Substance: CALCIUM\VITAMIN D
  8. FAMOTIDINE. [Concomitant]
     Active Substance: FAMOTIDINE
  9. LOPERAMIDE [Concomitant]
     Active Substance: LOPERAMIDE
  10. MELPHALAN. [Suspect]
     Active Substance: MELPHALAN
     Indication: PLASMA CELL MYELOMA
     Route: 048
     Dates: start: 20190322, end: 20190417
  11. CALCIUM GLUCONATE. [Concomitant]
     Active Substance: CALCIUM GLUCONATE
  12. CEPHALEXIN. [Concomitant]
     Active Substance: CEPHALEXIN
  13. DARZALEX [Concomitant]
     Active Substance: DARATUMUMAB
  14. ASPIRIN. [Concomitant]
     Active Substance: ASPIRIN
  15. VITAMIN B COMPLEX [Concomitant]
     Active Substance: CYANOCOBALAMIN\DEXPANTHENOL\NIACINAMIDE\PYRIDOXINE HYDROCHLORIDE\RIBOFLAVIN 5^-PHOSPHATE SODIUM\THIAMINE HYDROCHLORIDE\VITAMIN B COMPLEX
  16. GRANISETRON [Concomitant]
     Active Substance: GRANISETRON
  17. HYDROMORPHONE [Concomitant]
     Active Substance: HYDROMORPHONE
  18. BORTEZOMIB. [Concomitant]
     Active Substance: BORTEZOMIB
  19. GLUCOSAMINE [Concomitant]
     Active Substance: GLUCOSAMINE
  20. DECADRON [Concomitant]
     Active Substance: DEXAMETHASONE
  21. FLOMAX [Concomitant]
     Active Substance: TAMSULOSIN HYDROCHLORIDE
  22. KEFLEX [Concomitant]
     Active Substance: CEPHALEXIN

REACTIONS (1)
  - Disease progression [None]

NARRATIVE: CASE EVENT DATE: 20190417
